FAERS Safety Report 4911052-4 (Version None)
Quarter: 2006Q1

REPORT INFORMATION
  Report Type: 
  Country: None (occurrence: None)
  Receive Date: 20060214
  Receipt Date: 20051012
  Transmission Date: 20060701
  Serious: Yes (Other)
  Sender: FDA-Public Use
  Company Number: US-MERCK-0510USA06875

PATIENT
  Age: 76 Year
  Sex: Female
  Weight: 80 kg

DRUGS (10)
  1. VIOXX [Suspect]
     Indication: ARTHRITIS
     Route: 048
     Dates: start: 20020415, end: 20040722
  2. GLYBURIDE [Concomitant]
     Indication: DIABETES MELLITUS
     Route: 065
     Dates: start: 20010114, end: 20051031
  3. ACCUPRIL [Concomitant]
     Indication: BLOOD PRESSURE
     Route: 065
     Dates: start: 20010114, end: 20051031
  4. ACCUPRIL [Concomitant]
     Indication: DIABETES MELLITUS
     Route: 065
     Dates: start: 20010114, end: 20051031
  5. ASPIRIN [Concomitant]
     Route: 065
  6. AVANDIA [Concomitant]
     Indication: DIABETES MELLITUS
     Route: 065
  7. NEURONTIN [Concomitant]
     Indication: CONVULSION
     Route: 065
     Dates: end: 20051104
  8. COLACE [Concomitant]
     Route: 065
  9. FLOXIN [Concomitant]
     Route: 065
  10. [THERAPY UNSPECIFIED] [Concomitant]
     Route: 065

REACTIONS (5)
  - CARDIAC FAILURE [None]
  - DIABETES MELLITUS [None]
  - HYPERTENSION [None]
  - MYOCARDIAL INFARCTION [None]
  - ULCER HAEMORRHAGE [None]
